FAERS Safety Report 6860401-9 (Version None)
Quarter: 2010Q3

REPORT INFORMATION
  Report Type: 
  Country: None (occurrence: None)
  Receive Date: 20100720
  Receipt Date: 20100707
  Transmission Date: 20110219
  Serious: Yes (Hospitalization)
  Sender: FDA-Public Use
  Company Number: SE-ELI_LILLY_AND_COMPANY-SE201007003026

PATIENT
  Sex: Male

DRUGS (6)
  1. CYMBALTA [Suspect]
     Indication: OBSESSIVE-COMPULSIVE DISORDER
     Dosage: 30 MG, DAILY (1/D)
     Route: 048
  2. CYMBALTA [Suspect]
     Dosage: 90 MG, UNKNOWN
     Route: 065
     Dates: start: 20100617
  3. CLONAZEPAM [Concomitant]
     Indication: OBSESSIVE-COMPULSIVE DISORDER
     Dosage: 2 MG, 2/D
     Route: 048
     Dates: start: 20100518
  4. CAMPRAL [Concomitant]
     Indication: ALCOHOL ABUSE
     Dosage: 999 MG, 2/D
     Route: 048
     Dates: start: 20091124
  5. ANTABUSE [Concomitant]
     Indication: ALCOHOL ABUSE
     Dosage: UNK, OTHER (PERIODIC)
  6. ANTABUSE [Concomitant]
     Dosage: UNK, OTHER (1/2 TABLET EVERY TWO DAYS)
     Route: 048
     Dates: start: 20100510

REACTIONS (8)
  - ASPERGER'S DISORDER [None]
  - DECREASED APPETITE [None]
  - FEELING ABNORMAL [None]
  - LACK OF SPONTANEOUS SPEECH [None]
  - MALAISE [None]
  - NAUSEA [None]
  - OFF LABEL USE [None]
  - WEIGHT DECREASED [None]
